FAERS Safety Report 8172643-3 (Version None)
Quarter: 2012Q1

REPORT INFORMATION
  Report Type: 
  Country: None (occurrence: None)
  Receive Date: 20120229
  Receipt Date: 20120210
  Transmission Date: 20120608
  Serious: No
  Sender: FDA-Public Use
  Company Number: US-PFIZER INC-2012052211

PATIENT
  Sex: Female

DRUGS (1)
  1. LO/OVRAL-28 [Suspect]
     Dosage: UNK
     Dates: start: 19920101

REACTIONS (6)
  - IRRITABILITY [None]
  - DYSPNOEA [None]
  - HYPOAESTHESIA [None]
  - FEELING ABNORMAL [None]
  - MOOD SWINGS [None]
  - CHEST DISCOMFORT [None]
